FAERS Safety Report 9513568 (Version 2)
Quarter: 2014Q1

REPORT INFORMATION
  Report Type: Spontaneous
  Country: US (occurrence: None)
  Receive Date: 20130305
  Receipt Date: 20140306
  Transmission Date: 20141002
  Serious: Yes (Hospitalization)
  Sender: FDA-Public Use
  Company Number: 163-21880-12102060

PATIENT
  Age: 75 Year
  Sex: Male

DRUGS (26)
  1. REVLIMID [Suspect]
     Indication: PLASMA CELL MYELOMA
     Dosage: 10 MG (1 IN 1 D, PO
     Route: 048
     Dates: start: 201206
  2. AUGMENTIN (CLAVULIN) [Concomitant]
  3. DEXAMETHASONE [Concomitant]
  4. MORPHINE SULFATE [Concomitant]
  5. ZOMETA (ZOLEDRONIC ACID) [Concomitant]
  6. MS CONTIN (MORPHINE SULFATE) [Concomitant]
  7. DOCUSATE SODIUM [Concomitant]
  8. CALCIUM CARBONATE-VITAMIN D (LEKOVIT CA) [Concomitant]
  9. ASPIRIN (ACETYLSALICYLIC ACID) [Concomitant]
  10. GABAPENTIN [Concomitant]
  11. METOPROLOL SUCCINATE [Concomitant]
  12. ADVAIR DISKUS (SERETIDE MITE) [Concomitant]
  13. CYMBALTA (DULOXETINE HYDROCHLORIDE) [Concomitant]
  14. DIFLUCAN (FLUCONAZOLE) [Concomitant]
  15. LIPITOR (ATORVASTATIN) [Concomitant]
  16. LOSARTAN [Concomitant]
  17. MYLANTA [Concomitant]
  18. NORVASC (AMLODIPINE BESILATE) [Concomitant]
  19. PERCOCET (OXYCOCET) [Concomitant]
  20. SENOKOT (SENNA FRUIT) [Concomitant]
  21. SINGULAIR (MONTELUKAST SODIUM) TABLET [Concomitant]
  22. SPIRIVA HANDI HALER (TIOTROPIUM BROMIDE) [Concomitant]
  23. ZOVIRAX (ACICLOVIR) [Concomitant]
  24. ALLOPURINOL [Concomitant]
  25. LEVOPHED (NOREPINEHRINE BITARTRATE) [Concomitant]
  26. I.V. FLUIDS (I.V. SOLUTIONS) [Concomitant]

REACTIONS (3)
  - Respiratory tract infection [None]
  - Neutropenia [None]
  - Thrombocytopenia [None]
